FAERS Safety Report 11144915 (Version 1)
Quarter: 2015Q2

REPORT INFORMATION
  Report Type: Spontaneous
  Country: US (occurrence: US)
  Receive Date: 20150528
  Receipt Date: 20150528
  Transmission Date: 20150821
  Serious: Yes (Hospitalization)
  Sender: FDA-Public Use
  Company Number: US-BIOGENIDEC-2015BI070836

PATIENT
  Age: 56 Year
  Sex: Female

DRUGS (14)
  1. TIZIDINE [Concomitant]
  2. LECITHIN [Concomitant]
     Active Substance: LECITHIN
  3. FISH OIL [Concomitant]
     Active Substance: FISH OIL
  4. GARLIC. [Concomitant]
     Active Substance: GARLIC
  5. SIMVASTATIN. [Concomitant]
     Active Substance: SIMVASTATIN
  6. GLUCOSOMINE [Concomitant]
  7. TECFIDERA [Suspect]
     Active Substance: DIMETHYL FUMARATE
     Indication: MULTIPLE SCLEROSIS
     Route: 048
     Dates: start: 20150516
  8. VITAMIN B12 [Concomitant]
     Active Substance: CYANOCOBALAMIN
  9. FOLIC ACID. [Concomitant]
     Active Substance: FOLIC ACID
  10. BACLOFEN. [Concomitant]
     Active Substance: BACLOFEN
  11. BIOTIN [Concomitant]
     Active Substance: BIOTIN
  12. K-DUR [Concomitant]
     Active Substance: POTASSIUM CHLORIDE
  13. TECFIDERA [Suspect]
     Active Substance: DIMETHYL FUMARATE
     Indication: MULTIPLE SCLEROSIS
     Route: 048
     Dates: start: 20150506, end: 20150509
  14. LOSARTAN POTASSIUM. [Concomitant]
     Active Substance: LOSARTAN POTASSIUM

REACTIONS (5)
  - Loss of control of legs [Recovered/Resolved]
  - Post-traumatic stress disorder [Unknown]
  - Therapy cessation [Recovered/Resolved]
  - Constipation [Not Recovered/Not Resolved]
  - Muscular weakness [Unknown]

NARRATIVE: CASE EVENT DATE: 20150509
